FAERS Safety Report 4297136-5 (Version None)
Quarter: 2004Q1

REPORT INFORMATION
  Report Type: 
  Country: None (occurrence: None)
  Receive Date: 20040213
  Receipt Date: 20040209
  Transmission Date: 20041129
  Serious: Yes (Other)
  Sender: FDA-Public Use
  Company Number: 2004197831BR

PATIENT
  Age: 39 Year
  Sex: Female

DRUGS (2)
  1. DEPO-PROVERA [Suspect]
     Indication: CONTRACEPTION
     Dosage: 150 MG/3 MONTHS, 1ST INJECT, INTRAMUSCULAR
     Route: 030
     Dates: start: 20030731, end: 20030731
  2. PANTOPRAZOLE [Concomitant]

REACTIONS (5)
  - APPETITE DISORDER [None]
  - HIATUS HERNIA [None]
  - MIGRAINE [None]
  - VERTIGO [None]
  - WEIGHT INCREASED [None]
